FAERS Safety Report 4771729-0 (Version None)
Quarter: 2005Q3

REPORT INFORMATION
  Report Type: 
  Country: None (occurrence: None)
  Receive Date: 20050916
  Receipt Date: 20050629
  Transmission Date: 20060218
  Serious: Yes (Hospitalization, Disabling)
  Sender: FDA-Public Use
  Company Number: US-ROCHE-409435

PATIENT
  Age: 17 Year
  Sex: Female
  Weight: 77.1 kg

DRUGS (2)
  1. ACCUTANE [Suspect]
     Route: 048
     Dates: start: 19861105, end: 19970331
  2. MINOCIN [Concomitant]
     Route: 048
     Dates: start: 19861105

REACTIONS (20)
  - ABSCESS [None]
  - AMENORRHOEA [None]
  - BLOOD SODIUM DECREASED [None]
  - COLITIS [None]
  - COLITIS ULCERATIVE [None]
  - CONDYLOMA ACUMINATUM [None]
  - ECZEMA [None]
  - EYE INFECTION [None]
  - FUNGAL INFECTION [None]
  - GASTROINTESTINAL DISORDER [None]
  - GASTROINTESTINAL INFECTION [None]
  - INFLAMMATORY BOWEL DISEASE [None]
  - INTESTINAL HAEMORRHAGE [None]
  - MOOD ALTERED [None]
  - MULTI-ORGAN DISORDER [None]
  - ONYCHOMYCOSIS [None]
  - PARAESTHESIA [None]
  - PREGNANCY [None]
  - RECTAL HAEMORRHAGE [None]
  - WEIGHT DECREASED [None]
